FAERS Safety Report 9256184 (Version 1)
Quarter: 2013Q2

REPORT INFORMATION
  Report Type: Spontaneous
  Country: US (occurrence: US)
  Receive Date: 20130425
  Receipt Date: 20130425
  Transmission Date: 20140414
  Serious: No
  Sender: FDA-Public Use
  Company Number: US-AMGEN-USASP2012027152

PATIENT
  Age: 35 Year
  Sex: Female
  Weight: 104 kg

DRUGS (10)
  1. PEGFILGRASTIM [Suspect]
     Indication: BREAST CANCER
     Dosage: 6 MG, UNK
     Route: 058
     Dates: start: 20090312, end: 20090722
  2. BEVACIZUMAB [Suspect]
     Indication: BREAST CANCER
     Dosage: 10 MG/KG, UNK
     Route: 042
     Dates: start: 20090311, end: 20090722
  3. BEVACIZUMAB [Suspect]
     Dosage: 15 MG/KG, UNK
     Route: 042
     Dates: end: 20090722
  4. PACLITAXEL [Suspect]
     Dosage: 80 MG/M2, UNK
     Route: 042
     Dates: end: 20090722
  5. DOXORUBICIN [Suspect]
     Indication: BREAST CANCER
     Dosage: 60 MG/M2, UNK
     Route: 042
     Dates: start: 20090311, end: 20090722
  6. CYCLOPHOSPHAMIDE [Suspect]
     Indication: BREAST CANCER
     Dosage: 600 MG/M2, UNK
     Route: 042
     Dates: start: 20090311, end: 20090722
  7. BEVACIZUMAB [Concomitant]
     Dosage: 10 MG/KG, UNK
     Route: 042
     Dates: start: 20090311, end: 20090722
  8. PACLITAXEL [Concomitant]
     Dosage: 80 MG/M2, UNK
     Route: 042
     Dates: end: 20090722
  9. DOXORUBICIN [Concomitant]
     Indication: BREAST CANCER
     Dosage: 60 MG/M2, UNK
     Route: 042
     Dates: start: 20090311, end: 20090722
  10. CYCLOPHOSPHAMIDE [Concomitant]
     Indication: BREAST CANCER
     Dosage: 600 MG/M2, UNK
     Route: 042
     Dates: start: 20090311, end: 20090722

REACTIONS (1)
  - Ejection fraction decreased [Recovered/Resolved]
